FAERS Safety Report 8838347 (Version 2)
Quarter: 2012Q4

REPORT INFORMATION
  Report Type: Report from Study
  Country: DE (occurrence: DE)
  Receive Date: 20121012
  Receipt Date: 20121019
  Transmission Date: 20130627
  Serious: Yes (Life-Threatening, Hospitalization)
  Sender: FDA-Public Use
  Company Number: DE-GLAXOSMITHKLINE-B0837182A

PATIENT
  Age: 41 Year
  Sex: Female
  Weight: 79 kg

DRUGS (4)
  1. LAPATINIB [Suspect]
     Indication: BREAST CANCER
     Dosage: 750MG Per day
     Route: 048
     Dates: start: 20120412, end: 20120612
  2. PACLITAXEL [Suspect]
     Indication: BREAST CANCER
     Dosage: 150MG Cyclic
     Route: 042
     Dates: start: 20120412, end: 20120612
  3. TRASTUZUMAB [Suspect]
     Indication: BREAST CANCER
     Dosage: 483MG Cyclic
     Route: 042
     Dates: start: 20120412, end: 20120612
  4. LIPOSOME ENCAPSULATED DOXORUBICIN CITRATE COMPLEX [Suspect]
     Indication: BREAST CANCER
     Dosage: 38MG Cyclic
     Route: 042
     Dates: start: 20120412, end: 20120612

REACTIONS (1)
  - Pneumonia [Recovered/Resolved]
